FAERS Safety Report 12836325 (Version 2)
Quarter: 2016Q4

REPORT INFORMATION
  Report Type: Spontaneous
  Country: US (occurrence: US)
  Receive Date: 20161011
  Receipt Date: 20161108
  Transmission Date: 20170207
  Serious: No
  Sender: FDA-Public Use
  Company Number: US-GLAXOSMITHKLINE-US2016GSK148367

PATIENT
  Sex: Female

DRUGS (2)
  1. BENLYSTA [Suspect]
     Active Substance: BELIMUMAB
     Indication: SYSTEMIC LUPUS ERYTHEMATOSUS
     Dosage: UNK, U
  2. BENLYSTA [Suspect]
     Active Substance: BELIMUMAB
     Dosage: UNK, U

REACTIONS (3)
  - Pharyngeal oedema [Unknown]
  - Enlarged uvula [Unknown]
  - Adverse reaction [Unknown]

NARRATIVE: CASE EVENT DATE: 20161005
